FAERS Safety Report 21941600 (Version 1)
Quarter: 2023Q1

REPORT INFORMATION
  Report Type: Report from Study
  Country: US (occurrence: US)
  Receive Date: 20230202
  Receipt Date: 20230202
  Transmission Date: 20230418
  Serious: No
  Sender: FDA-Public Use
  Company Number: US-EXELIXIS-CABO-22055527

PATIENT
  Sex: Male

DRUGS (12)
  1. CABOMETYX [Suspect]
     Active Substance: CABOZANTINIB S-MALATE
     Indication: Renal cancer
     Dosage: 40 MG, QD
     Route: 048
     Dates: start: 202111, end: 202205
  2. CABOMETYX [Suspect]
     Active Substance: CABOZANTINIB S-MALATE
     Dosage: UNK
     Route: 048
     Dates: start: 20220801
  3. OPDIVO [Concomitant]
     Active Substance: NIVOLUMAB
  4. NORCO [Concomitant]
     Active Substance: ACETAMINOPHEN\HYDROCODONE BITARTRATE
  5. COLACE [Concomitant]
     Active Substance: DOCUSATE SODIUM
  6. AMBIEN [Concomitant]
     Active Substance: ZOLPIDEM TARTRATE
  7. BUPROPION [Concomitant]
     Active Substance: BUPROPION
  8. LISINOPRIL [Concomitant]
     Active Substance: LISINOPRIL
  9. NORVASC [Concomitant]
     Active Substance: AMLODIPINE BESYLATE
  10. SYNTHROID [Concomitant]
     Active Substance: LEVOTHYROXINE SODIUM
  11. OMEPRAZOLE [Concomitant]
     Active Substance: OMEPRAZOLE
  12. ROPINIROLE [Concomitant]
     Active Substance: ROPINIROLE

REACTIONS (2)
  - Tooth disorder [Unknown]
  - Dyspnoea exertional [Unknown]
